FAERS Safety Report 12891263 (Version 1)
Quarter: 2016Q4

REPORT INFORMATION
  Report Type: Spontaneous
  Country: US (occurrence: US)
  Receive Date: 20161026
  Receipt Date: 20161026
  Transmission Date: 20170207
  Serious: Yes (Other)
  Sender: FDA-Public Use
  Company Number: None

PATIENT
  Age: 67 Year
  Sex: Female
  Weight: 86 kg

DRUGS (1)
  1. DIPRIVAN [Suspect]
     Active Substance: PROPOFOL
     Indication: ANAESTHESIA
     Dosage: ?          OTHER FREQUENCY:PRN;?
     Route: 042
     Dates: start: 20161025, end: 20161025

REACTIONS (6)
  - Aggression [None]
  - Confusional state [None]
  - Screaming [None]
  - Agitation [None]
  - Abnormal behaviour [None]
  - Nightmare [None]

NARRATIVE: CASE EVENT DATE: 20161025
